FAERS Safety Report 18784040 (Version 1)
Quarter: 2021Q1

REPORT INFORMATION
  Report Type: Spontaneous
  Country: JP (occurrence: JP)
  Receive Date: 20210125
  Receipt Date: 20210125
  Transmission Date: 20210419
  Serious: Yes (Hospitalization, Other)
  Sender: FDA-Public Use
  Company Number: JP-PFIZER INC-2021051341

PATIENT
  Age: 7 Decade
  Sex: Female
  Weight: 45 kg

DRUGS (2)
  1. INLYTA [Suspect]
     Active Substance: AXITINIB
     Dosage: UNK
  2. BAVENCIO [Suspect]
     Active Substance: AVELUMAB
     Dosage: UNK
     Route: 042
     Dates: start: 20201102

REACTIONS (4)
  - Type 1 diabetes mellitus [Unknown]
  - Vomiting [Unknown]
  - Urticaria [Unknown]
  - Dehydration [Unknown]
